FAERS Safety Report 25515717 (Version 2)
Quarter: 2025Q3

REPORT INFORMATION
  Report Type: Spontaneous
  Country: EU (occurrence: EU)
  Receive Date: 20250704
  Receipt Date: 20250904
  Transmission Date: 20251020
  Serious: Yes (Other)
  Sender: TEVA
  Company Number: EU-TEVA-VS-3345918

PATIENT
  Age: 35 Year
  Sex: Female

DRUGS (1)
  1. AJOVY [Suspect]
     Active Substance: FREMANEZUMAB-VFRM
     Indication: Migraine
     Dosage: AJOVY 225 MG INJEKTIONSL?SUNG IN FERTIGPEN
     Route: 065
     Dates: start: 202412

REACTIONS (3)
  - Autoimmune neutropenia [Unknown]
  - Systemic lupus erythematosus [Unknown]
  - Thymus enlargement [Unknown]
